FAERS Safety Report 5060860-0 (Version None)
Quarter: 2006Q3

REPORT INFORMATION
  Report Type: 
  Country: None (occurrence: None)
  Receive Date: 20060719
  Receipt Date: 20060719
  Transmission Date: 20061208
  Serious: Yes (Hospitalization)
  Sender: FDA-Public Use
  Company Number: None

PATIENT
  Age: 75 Year
  Sex: Female
  Weight: 77.6 kg

DRUGS (1)
  1. HYDROCHLOROTHIAZIDE [Suspect]
     Indication: HYPERTENSION
     Dosage: 12.5MG QD PO
     Route: 048

REACTIONS (15)
  - ABDOMINAL PAIN [None]
  - ACUTE PRERENAL FAILURE [None]
  - ANAEMIA [None]
  - BLOOD PRESSURE INCREASED [None]
  - CONVULSION [None]
  - DEHYDRATION [None]
  - DYSARTHRIA [None]
  - ELECTROCARDIOGRAM QRS COMPLEX PROLONGED [None]
  - HERPES ZOSTER [None]
  - HYPOTENSION [None]
  - POLYURIA [None]
  - PROSTATIC SPECIFIC ANTIGEN INCREASED [None]
  - QRS AXIS ABNORMAL [None]
  - RENAL FAILURE ACUTE [None]
  - URINARY TRACT INFECTION [None]
